FAERS Safety Report 6604552-2 (Version None)
Quarter: 2010Q1

REPORT INFORMATION
  Report Type: 
  Country: None (occurrence: None)
  Receive Date: 20100226
  Receipt Date: 20091120
  Transmission Date: 20100710
  Serious: No
  Sender: FDA-Public Use
  Company Number: A0822132A

PATIENT
  Age: 44 Year
  Sex: Female

DRUGS (6)
  1. LAMICTAL CD [Suspect]
     Indication: BIPOLAR DISORDER
     Dosage: 450MG THREE TIMES PER DAY
     Route: 048
     Dates: start: 20030101, end: 20090101
  2. LITHIUM [Concomitant]
  3. PROZAC [Concomitant]
  4. TRILEPTAL [Concomitant]
  5. GLUCOPHAGE [Concomitant]
  6. VYTORIN [Concomitant]

REACTIONS (1)
  - TREMOR [None]
